FAERS Safety Report 14220457 (Version 2)
Quarter: 2018Q1

REPORT INFORMATION
  Report Type: Spontaneous
  Country: US (occurrence: US)
  Receive Date: 20171124
  Receipt Date: 20180223
  Transmission Date: 20180508
  Serious: No
  Sender: FDA-Public Use
  Company Number: US-GLAXOSMITHKLINE-US2017178326

PATIENT
  Age: 33 Year
  Sex: Female

DRUGS (1)
  1. ABREVA [Suspect]
     Active Substance: DOCOSANOL
     Indication: ORAL HERPES
     Dosage: UNK, USED 5 TIMES A DAY
     Dates: start: 20171106, end: 20171118

REACTIONS (2)
  - Incorrect drug administration duration [Recovering/Resolving]
  - Exposure during pregnancy [Recovering/Resolving]
